FAERS Safety Report 5040893-0 (Version None)
Quarter: 2006Q2

REPORT INFORMATION
  Report Type: 
  Country: None (occurrence: None)
  Receive Date: 20060601
  Receipt Date: 20060301
  Transmission Date: 20061013
  Serious: No
  Sender: FDA-Public Use
  Company Number: 2006PV009534

PATIENT
  Age: 49 Year
  Sex: Female
  Weight: 110.6777 kg

DRUGS (8)
  1. BYETTA [Suspect]
     Indication: DIABETES MELLITUS NON-INSULIN-DEPENDENT
     Dosage: SEE IMAGE
     Route: 058
     Dates: start: 20060111, end: 20060209
  2. BYETTA [Suspect]
     Indication: DIABETES MELLITUS NON-INSULIN-DEPENDENT
     Dosage: SEE IMAGE
     Route: 058
     Dates: start: 20060210
  3. BYETTA [Suspect]
  4. METFORMIN [Concomitant]
  5. ACTOS [Concomitant]
  6. CRESTOR [Concomitant]
  7. BENICAR [Concomitant]
  8. SYNTHROID [Concomitant]

REACTIONS (2)
  - OEDEMA [None]
  - WEIGHT INCREASED [None]
